FAERS Safety Report 12820995 (Version 1)
Quarter: 2016Q4

REPORT INFORMATION
  Report Type: Spontaneous
  Country: FR (occurrence: FR)
  Receive Date: 20161006
  Receipt Date: 20161006
  Transmission Date: 20170207
  Serious: Yes (Hospitalization, Other)
  Sender: FDA-Public Use
  Company Number: FR-BRISTOL-MYERS SQUIBB COMPANY-BMS-2016-080378

PATIENT
  Age: 70 Year
  Sex: Female

DRUGS (2)
  1. LOVENOX [Suspect]
     Active Substance: ENOXAPARIN SODIUM
     Indication: PRODUCT USED FOR UNKNOWN INDICATION
     Dosage: 0.7 ML, BID
     Route: 058
     Dates: start: 20160607, end: 20160614
  2. COUMADINE [Suspect]
     Active Substance: WARFARIN SODIUM
     Indication: PRODUCT USED FOR UNKNOWN INDICATION
     Dosage: UNK
     Route: 048
     Dates: end: 20160607

REACTIONS (8)
  - Shock [Unknown]
  - Anaemia [Unknown]
  - Therapeutic embolisation [Unknown]
  - Arthritis bacterial [Unknown]
  - Arterial haemorrhage [Unknown]
  - Aspiration joint [Unknown]
  - Transfusion [Unknown]
  - Gout [Unknown]

NARRATIVE: CASE EVENT DATE: 20160613
